FAERS Safety Report 22222172 (Version 1)
Quarter: 2023Q2

REPORT INFORMATION
  Report Type: Spontaneous
  Country: CZ (occurrence: CZ)
  Receive Date: 20230418
  Receipt Date: 20230418
  Transmission Date: 20230721
  Serious: Yes (Life-Threatening, Hospitalization, Other)
  Sender: FDA-Public Use
  Company Number: None

PATIENT
  Age: 47 Year
  Sex: Female
  Weight: 67 kg

DRUGS (8)
  1. YERVOY [Suspect]
     Active Substance: IPILIMUMAB
     Indication: Malignant melanoma
     Dosage: NIVOLUMAB 1MG/KG + IPILIMUMAB 3MG/KG EVERY THREE WEEKS; 2 CYCLES IN TOTAL
     Route: 042
     Dates: start: 20230111, end: 20230224
  2. OPDIVO [Suspect]
     Active Substance: NIVOLUMAB
     Indication: Malignant melanoma
     Dosage: NIVOLUMAB 1MG/KG + IPILIMUMAB 3MG/KG EVERY THREE WEEKS; 2 CYCLES IN TOTAL
     Route: 042
     Dates: start: 20230111, end: 20230224
  3. IBUPROFEN [Concomitant]
     Active Substance: IBUPROFEN
     Indication: Pain
     Dosage: 1-0-1 WHEN PAIN
  4. METHIMAZOLE [Concomitant]
     Active Substance: METHIMAZOLE
     Indication: Product used for unknown indication
     Dosage: 1-1-1
  5. BILASTINE [Concomitant]
     Active Substance: BILASTINE
     Indication: Product used for unknown indication
     Dosage: 1 TO 3 TIMES A DAY
  6. DIOZEN [Concomitant]
     Indication: Product used for unknown indication
     Dosage: 2-0-2
  7. BISULEPIN [Concomitant]
     Active Substance: BISULEPIN
     Indication: Product used for unknown indication
     Dosage: 0-0-0-1
  8. OMEPRAZOLE [Concomitant]
     Active Substance: OMEPRAZOLE
     Indication: Product used for unknown indication
     Dosage: 1-0-0

REACTIONS (4)
  - Skin toxicity [Recovering/Resolving]
  - Hyperthyroidism [Recovered/Resolved]
  - Hepatotoxicity [Recovering/Resolving]
  - Febrile neutropenia [Recovering/Resolving]

NARRATIVE: CASE EVENT DATE: 20230308
